FAERS Safety Report 25378410 (Version 1)
Quarter: 2025Q2

REPORT INFORMATION
  Report Type: Spontaneous
  Country: US (occurrence: US)
  Receive Date: 20250530
  Receipt Date: 20250530
  Transmission Date: 20250716
  Serious: Yes (Hospitalization)
  Sender: PHARMALEX US CORPORATION
  Company Number: US-PharmaLex US Corporation-2177748

PATIENT
  Sex: Female

DRUGS (1)
  1. CYTALUX [Suspect]
     Active Substance: PAFOLACIANINE SODIUM
     Indication: Ovarian epithelial cancer

REACTIONS (2)
  - Pleural effusion [Unknown]
  - False positive investigation result [Unknown]
